FAERS Safety Report 20834961 (Version 1)
Quarter: 2022Q2

REPORT INFORMATION
  Report Type: Spontaneous
  Country: JP (occurrence: JP)
  Receive Date: 20220516
  Receipt Date: 20220516
  Transmission Date: 20220721
  Serious: Yes (Other)
  Sender: FDA-Public Use
  Company Number: JP-MLMSERVICE-20220504-3537935-1

PATIENT
  Age: 71 Year
  Sex: Male
  Weight: 53.6 kg

DRUGS (19)
  1. DEXAMETHASONE [Suspect]
     Active Substance: DEXAMETHASONE
     Indication: Small cell lung cancer
     Dosage: 9.5-5.7 MG/DAY; DAY 2
     Route: 065
     Dates: start: 20200902, end: 202009
  2. DEXAMETHASONE [Suspect]
     Active Substance: DEXAMETHASONE
     Dosage: DAY 16
     Route: 065
     Dates: start: 20200916
  3. DEXAMETHASONE [Suspect]
     Active Substance: DEXAMETHASONE
     Dosage: 3 RD; 4 TH CHEMOTHERAPY COURSE
     Route: 065
  4. CISPLATIN [Suspect]
     Active Substance: CISPLATIN
     Indication: Small cell lung cancer
     Dosage: ON DAY 1
     Route: 065
     Dates: start: 20200902, end: 202009
  5. CISPLATIN [Suspect]
     Active Substance: CISPLATIN
     Dosage: ON DAY 28
     Route: 065
     Dates: start: 20200928
  6. IRINOTECAN [Suspect]
     Active Substance: IRINOTECAN
     Indication: Small cell lung cancer
     Dosage: ON DAY 2; 60 MG/M2 FOR 3 CONSECUTIVE WEEKS FOLLOWED BY 1-WEEK REST, FOUR COURSES OF CHEMOTHERAPY
     Route: 065
     Dates: start: 20200902, end: 202009
  7. IRINOTECAN [Suspect]
     Active Substance: IRINOTECAN
     Dosage: ON DAY 28; FOUR COURSES OF CHEMOTHERAPY
     Route: 065
     Dates: start: 20200928
  8. IRINOTECAN [Suspect]
     Active Substance: IRINOTECAN
     Dosage: 3 RD; 4 TH CHEMOTHERAPY COURSE
     Route: 065
  9. PALONOSETRON [Suspect]
     Active Substance: PALONOSETRON
     Indication: Prophylaxis of nausea and vomiting
     Dosage: DAY 2
     Route: 065
     Dates: start: 20200902
  10. PALONOSETRON [Suspect]
     Active Substance: PALONOSETRON
     Dosage: 2 ND, 3 RD; 4 TH CHEMOTHERAPY COURSE
     Route: 065
  11. APREPITANT [Suspect]
     Active Substance: APREPITANT
     Indication: Prophylaxis of nausea and vomiting
     Dosage: DAY 2
     Route: 065
     Dates: start: 20200902, end: 202009
  12. APREPITANT [Suspect]
     Active Substance: APREPITANT
     Dosage: DAY3-4
     Route: 065
     Dates: start: 20200903, end: 202009
  13. APREPITANT [Suspect]
     Active Substance: APREPITANT
     Route: 065
  14. VALSARTAN [Concomitant]
     Active Substance: VALSARTAN
     Indication: Hypertension
     Dosage: DAY 9, DISCONTINUED BOTH ANTIHYPERTENSIVE DRUGS
     Dates: end: 20200909
  15. AMLODIPINE [Concomitant]
     Active Substance: AMLODIPINE BESYLATE
     Indication: Hypertension
     Dosage: DAY 9, DISCONTINUED BOTH ANTIHYPERTENSIVE DRUGS
     Dates: end: 20200909
  16. FEBUXOSTAT [Concomitant]
     Active Substance: FEBUXOSTAT
     Indication: Product used for unknown indication
     Dosage: DAY 2
     Dates: start: 20200902
  17. FEBUXOSTAT [Concomitant]
     Active Substance: FEBUXOSTAT
     Route: 065
  18. PEGFILGRASTIM [Concomitant]
     Active Substance: PEGFILGRASTIM
     Indication: Product used for unknown indication
     Dates: start: 202009
  19. PEGFILGRASTIM [Concomitant]
     Active Substance: PEGFILGRASTIM
     Route: 065

REACTIONS (4)
  - Adrenal insufficiency [Unknown]
  - Hypotension [Unknown]
  - Constipation [Unknown]
  - Headache [Unknown]

NARRATIVE: CASE EVENT DATE: 20200901
